FAERS Safety Report 7598059-6 (Version None)
Quarter: 2011Q3

REPORT INFORMATION
  Report Type: 
  Country: None (occurrence: None)
  Receive Date: 20110708
  Receipt Date: 20110704
  Transmission Date: 20111222
  Serious: Yes (Life-Threatening)
  Sender: FDA-Public Use
  Company Number: FR-UCBSA-036541

PATIENT
  Sex: Female

DRUGS (7)
  1. XYZAL [Suspect]
     Route: 048
     Dates: start: 20110303, end: 20110525
  2. RABEPRAZOLE SODIUM [Concomitant]
  3. IXEL [Concomitant]
  4. ACETAMINOPHEN [Concomitant]
  5. EXELON [Suspect]
     Dosage: 4.6/24 HOURS
     Route: 062
     Dates: start: 20110304, end: 20110525
  6. ASPIRIN [Concomitant]
  7. RISPERDAL [Suspect]
     Dosage: ORAL SOLUTION 1 MG/ML
     Route: 048
     Dates: start: 20110509, end: 20110501

REACTIONS (3)
  - AGITATION [None]
  - DYSPHAGIA [None]
  - SOMNOLENCE [None]
